FAERS Safety Report 8609214-8 (Version None)
Quarter: 2012Q3

REPORT INFORMATION
  Report Type: 
  Country: None (occurrence: None)
  Receive Date: 20120821
  Receipt Date: 20120808
  Transmission Date: 20120928
  Serious: No
  Sender: FDA-Public Use
  Company Number: US-ASTRAZENECA-2008UW28530

PATIENT
  Age: 47 Year
  Sex: Female
  Weight: 113.9 kg

DRUGS (28)
  1. SEROQUEL [Suspect]
     Indication: SLEEP DISORDER
     Route: 048
     Dates: start: 20060512
  2. SEROQUEL [Suspect]
     Route: 048
  3. TOPAMAX [Concomitant]
     Indication: MIGRAINE
     Route: 048
  4. LORTAB [Concomitant]
     Dosage: PRN
     Route: 048
  5. NORCO [Concomitant]
     Indication: MUSCULOSKELETAL DISCOMFORT
     Dosage: 7.5 / 50 PRN
  6. NEXIUM [Suspect]
     Indication: PEPTIC ULCER
     Route: 048
  7. EXCEDRIN (MIGRAINE) [Concomitant]
     Indication: TENSION
     Dosage: PRN
     Route: 048
  8. TOVIAZ [Concomitant]
  9. SAVELLA [Concomitant]
     Indication: FIBROMYALGIA
     Route: 048
  10. ZIPSOR [Concomitant]
     Indication: INFLAMMATION
     Route: 048
  11. VALIUM [Concomitant]
     Route: 048
  12. SOMA [Concomitant]
     Indication: MUSCULOSKELETAL DISCOMFORT
     Route: 048
  13. NEXIUM [Suspect]
     Indication: GASTROOESOPHAGEAL REFLUX DISEASE
     Route: 048
  14. SEROQUEL [Suspect]
     Indication: BIPOLAR DISORDER
     Route: 048
     Dates: start: 20060512
  15. TOPAMAX [Concomitant]
     Route: 048
  16. ZIPSOR [Concomitant]
     Indication: PAIN
     Route: 048
  17. SOMA [Concomitant]
     Indication: BACK DISORDER
     Route: 048
  18. SUMATRIPTAN [Concomitant]
     Indication: MIGRAINE
     Route: 048
  19. EXCEDRIN (MIGRAINE) [Concomitant]
     Indication: HEADACHE
     Dosage: PRN
     Route: 048
  20. LEVOTHYROXINE SODIUM [Concomitant]
     Indication: THYROID DISORDER
  21. SEROQUEL [Suspect]
     Route: 048
  22. SAVELLA [Concomitant]
     Route: 048
  23. SEROQUEL [Suspect]
     Indication: SUICIDE ATTEMPT
     Route: 048
     Dates: start: 20060512
  24. WELLBUTRIN [Concomitant]
     Route: 048
  25. TOPAMAX [Concomitant]
     Route: 048
  26. VALIUM [Concomitant]
     Dosage: PRN
     Route: 048
  27. SEROQUEL [Suspect]
     Route: 048
  28. NORCO [Concomitant]
     Indication: BACK DISORDER
     Dosage: 7.5 / 50 PRN

REACTIONS (15)
  - BIPOLAR DISORDER [None]
  - BREAST DISCHARGE [None]
  - APPENDIX DISORDER [None]
  - DRUG DOSE OMISSION [None]
  - URINARY INCONTINENCE [None]
  - BLADDER DILATATION [None]
  - BREAST DISORDER [None]
  - BREAST MASS [None]
  - NAUSEA [None]
  - BLADDER DISORDER [None]
  - WEIGHT INCREASED [None]
  - MIGRAINE [None]
  - ADVERSE EVENT [None]
  - MALAISE [None]
  - DEPRESSION [None]
